FAERS Safety Report 5282650-6 (Version None)
Quarter: 2007Q1

REPORT INFORMATION
  Report Type: 
  Country: None (occurrence: None)
  Receive Date: 20061226
  Receipt Date: 20060807
  Transmission Date: 20070707
  Serious: No
  Sender: FDA-Public Use
  Company Number: PHEH2006US08767

PATIENT
  Age: 72 Year
  Sex: Female

DRUGS (5)
  1. ENABLEX [Suspect]
     Indication: URINARY INCONTINENCE
     Dosage: 7.5 MG, QD
     Dates: start: 20060708, end: 20060709
  2. DIOVAN [Concomitant]
  3. LIPIOTOR /NET/ (ATORVASTATIN CALCIUM) [Concomitant]
  4. PLAVIX [Concomitant]
  5. DITROPAN XL [Concomitant]

REACTIONS (4)
  - CONSTIPATION [None]
  - OEDEMA PERIPHERAL [None]
  - POLLAKIURIA [None]
  - PRURITUS [None]
